FAERS Safety Report 11595780 (Version 1)
Quarter: 2015Q4

REPORT INFORMATION
  Report Type: Spontaneous
  Country: GR (occurrence: GR)
  Receive Date: 20151006
  Receipt Date: 20151006
  Transmission Date: 20160304
  Serious: Yes (Hospitalization)
  Sender: FDA-Public Use
  Company Number: GR-009507513-1510GRC000346

PATIENT
  Age: 41 Year
  Sex: Female

DRUGS (1)
  1. INEGY [Suspect]
     Active Substance: EZETIMIBE\SIMVASTATIN
     Indication: DYSLIPIDAEMIA
     Dosage: 1 TABLET EVERY DAY
     Route: 048
     Dates: start: 2010

REACTIONS (1)
  - Gastrectomy [Unknown]

NARRATIVE: CASE EVENT DATE: 20150821
